FAERS Safety Report 22019152 (Version 1)
Quarter: 2023Q1

REPORT INFORMATION
  Report Type: Spontaneous
  Country: GB (occurrence: GB)
  Receive Date: 20230222
  Receipt Date: 20230222
  Transmission Date: 20230417
  Serious: Yes (Other)
  Sender: FDA-Public Use
  Company Number: GB-MHRA-TPP51247799C7352391YC1675862972957

PATIENT
  Age: 3 Year
  Sex: Male
  Weight: 18 kg

DRUGS (4)
  1. MONTELUKAST [Suspect]
     Active Substance: MONTELUKAST SODIUM
     Indication: Product used for unknown indication
     Dosage: 4 MILLIGRAM, ONCE A DAY, AT NIGHT
     Route: 065
     Dates: start: 20220927
  2. AMOXICILLIN [Concomitant]
     Active Substance: AMOXICILLIN
     Indication: Product used for unknown indication
     Dosage: 5 MILLILITER, 3 TIMES A DAY,SPOONFUL
     Route: 065
     Dates: start: 20230130, end: 20230204
  3. BECLOMETHASONE DIPROPIONATE [Concomitant]
     Active Substance: BECLOMETHASONE DIPROPIONATE
     Indication: Product used for unknown indication
     Dosage: 2 DOSAGE FORM, TWO TIMES A DAY,PUFFS VIA SPACER.
     Route: 055
     Dates: start: 20210927
  4. ALBUTEROL [Concomitant]
     Active Substance: ALBUTEROL
     Indication: Asthma
     Dosage: (LOWER CARBON BRAND SALBUTAMOL): INH...
     Route: 065
     Dates: start: 20220912

REACTIONS (2)
  - Abnormal behaviour [Unknown]
  - Tic [Unknown]
